FAERS Safety Report 17983152 (Version 3)
Quarter: 2020Q4

REPORT INFORMATION
  Report Type: Spontaneous
  Country: US (occurrence: US)
  Receive Date: 20200706
  Receipt Date: 20201016
  Transmission Date: 20210113
  Serious: Yes (Other)
  Sender: FDA-Public Use
  Company Number: US-PFIZER INC-2020256960

PATIENT
  Age: 64 Year
  Sex: Female
  Weight: 111.3 kg

DRUGS (3)
  1. XELJANZ XR [Suspect]
     Active Substance: TOFACITINIB CITRATE
     Dosage: 11 MG, DAILY
     Route: 048
     Dates: start: 20200812, end: 20200824
  2. PREDNISONE. [Concomitant]
     Active Substance: PREDNISONE
     Indication: RHEUMATOID ARTHRITIS
     Dosage: 5 MG, 1X/DAY (5MG BY MOUTH WITH WATER A NIGHT)
     Route: 048
  3. XELJANZ XR [Suspect]
     Active Substance: TOFACITINIB CITRATE
     Indication: RHEUMATOID ARTHRITIS
     Dosage: 11 MG, 1X/DAY (11 MG BY MOUTH WITH WATER EVERY NIGHT)
     Route: 048
     Dates: start: 20180612, end: 20200720

REACTIONS (5)
  - Rash [Unknown]
  - White blood cell count decreased [Recovered/Resolved]
  - Pain in extremity [Unknown]
  - Neutropenia [Recovering/Resolving]
  - Neuropathy peripheral [Unknown]

NARRATIVE: CASE EVENT DATE: 2020
